FAERS Safety Report 4559927-2 (Version None)
Quarter: 2005Q1

REPORT INFORMATION
  Report Type: 
  Country: None (occurrence: None)
  Receive Date: 20050103
  Receipt Date: 20041007
  Transmission Date: 20050727
  Serious: Yes (Other)
  Sender: FDA-Public Use
  Company Number: 2004UW18089

PATIENT
  Age: 57 Year
  Sex: Male
  Weight: 140.6151 kg

DRUGS (1)
  1. CRESTOR [Suspect]
     Indication: BLOOD CHOLESTEROL INCREASED
     Dosage: 10 MG DAILY PO
     Route: 048
     Dates: start: 20031117, end: 20040825

REACTIONS (1)
  - BLOOD TRIGLYCERIDES INCREASED [None]
